FAERS Safety Report 5636317-2 (Version None)
Quarter: 2008Q1

REPORT INFORMATION
  Report Type: 
  Country: None (occurrence: None)
  Receive Date: 20080225
  Receipt Date: 20080225
  Transmission Date: 20080703
  Serious: Yes (Hospitalization, Disabling)
  Sender: FDA-Public Use
  Company Number: None

PATIENT
  Age: 71 Year
  Sex: Male
  Weight: 77 kg

DRUGS (1)
  1. HEPARIN SODIUM [Suspect]
     Indication: CATHETERISATION CARDIAC
     Dosage: 3,000 UNITS, 4,000 UNITS; 2; INTRA-ARTER
     Route: 013
     Dates: start: 20071119, end: 20071119

REACTIONS (3)
  - CEREBROVASCULAR ACCIDENT [None]
  - COAGULATION TIME PROLONGED [None]
  - THROMBOSIS [None]
